FAERS Safety Report 7586743-X (Version None)
Quarter: 2011Q3

REPORT INFORMATION
  Report Type: 
  Country: None (occurrence: None)
  Receive Date: 20110701
  Receipt Date: 20110627
  Transmission Date: 20111222
  Serious: Yes (Death)
  Sender: FDA-Public Use
  Company Number: TW-MERCK-1106USA03560

PATIENT
  Age: 96 Year
  Sex: Female
  Weight: 50 kg

DRUGS (1)
  1. FOSAMAX PLUS D [Suspect]
     Indication: OSTEOPOROSIS
     Route: 048
     Dates: start: 20091229, end: 20100323

REACTIONS (1)
  - DEATH [None]
